FAERS Safety Report 25159994 (Version 1)
Quarter: 2025Q2

REPORT INFORMATION
  Report Type: Spontaneous
  Country: JP (occurrence: JP)
  Receive Date: 20250404
  Receipt Date: 20250404
  Transmission Date: 20250716
  Serious: Yes (Other)
  Sender: NOVARTIS
  Company Number: JP-002147023-NVSJ2025JP003859

PATIENT
  Age: 74 Year
  Sex: Female

DRUGS (2)
  1. JADENU [Suspect]
     Active Substance: DEFERASIROX
     Indication: Aplastic anaemia
     Route: 048
  2. JADENU [Suspect]
     Active Substance: DEFERASIROX
     Indication: Iron overload

REACTIONS (2)
  - Pulmonary hypertension [Unknown]
  - Dyspnoea [Unknown]
